FAERS Safety Report 18184332 (Version 1)
Quarter: 2020Q3

REPORT INFORMATION
  Report Type: Report from Study
  Country: None (occurrence: US)
  Receive Date: 20200824
  Receipt Date: 20200824
  Transmission Date: 20201103
  Serious: Yes (Other)
  Sender: FDA-Public Use
  Company Number: US-ABBVIE-20K-163-3530268-00

PATIENT
  Sex: Female

DRUGS (4)
  1. SKYRIZI [Suspect]
     Active Substance: RISANKIZUMAB-RZAA
     Indication: PSORIASIS
     Route: 058
     Dates: start: 202003
  2. FLU SHOT [Suspect]
     Active Substance: INFLUENZA VIRUS VACCINE
     Indication: PRODUCT USED FOR UNKNOWN INDICATION
     Route: 065
  3. HUMIRA [Suspect]
     Active Substance: ADALIMUMAB
     Indication: PRODUCT USED FOR UNKNOWN INDICATION
     Route: 058
  4. SOLARASE [Suspect]
     Active Substance: DICLOFENAC
     Indication: PRODUCT USED FOR UNKNOWN INDICATION
     Route: 065
     Dates: start: 2017, end: 202003

REACTIONS (15)
  - Fatigue [Unknown]
  - Labyrinthitis [Unknown]
  - Thyroid hormones decreased [Unknown]
  - Stress [Unknown]
  - Tendonitis [Unknown]
  - Surgery [Unknown]
  - Gout [Unknown]
  - Inner ear inflammation [Unknown]
  - Skin disorder [Unknown]
  - Lymphadenopathy [Unknown]
  - Diplopia [Unknown]
  - Blood cholesterol decreased [Unknown]
  - Drug tolerance [Unknown]
  - Balance disorder [Unknown]
  - Endolymphatic hydrops [Unknown]

NARRATIVE: CASE EVENT DATE: 2012
